FAERS Safety Report 7682431-X (Version None)
Quarter: 2011Q3

REPORT INFORMATION
  Report Type: 
  Country: None (occurrence: None)
  Receive Date: 20110815
  Receipt Date: 20110808
  Transmission Date: 20111222
  Serious: Yes (Death, Hospitalization, Other)
  Sender: FDA-Public Use
  Company Number: DE-GENZYME-FLUD-1001335

PATIENT
  Age: 37 Year
  Sex: Male

DRUGS (5)
  1. CYCLOSPORINE [Concomitant]
     Indication: PROPHYLAXIS AGAINST GRAFT VERSUS HOST DISEASE
     Dosage: UNK
     Route: 065
  2. FLUDARA [Suspect]
     Indication: STEM CELL TRANSPLANT
     Dosage: UNK
     Route: 065
  3. FLUDARA [Suspect]
     Indication: ACUTE MYELOID LEUKAEMIA
  4. TREOSULFAN [Suspect]
     Indication: STEM CELL TRANSPLANT
     Dosage: UNK
     Route: 065
  5. TREOSULFAN [Suspect]
     Indication: ACUTE MYELOID LEUKAEMIA

REACTIONS (4)
  - CHLOROMA [None]
  - BLOOD STEM CELL TRANSPLANT FAILURE [None]
  - METASTASES TO MENINGES [None]
  - ACUTE GRAFT VERSUS HOST DISEASE IN SKIN [None]
